FAERS Safety Report 10574653 (Version 2)
Quarter: 2014Q4

REPORT INFORMATION
  Report Type: Spontaneous
  Country: IT (occurrence: IT)
  Receive Date: 20141110
  Receipt Date: 20141118
  Transmission Date: 20150529
  Serious: Yes (Hospitalization)
  Sender: FDA-Public Use
  Company Number: IT-ACTAVIS-2014-23881

PATIENT
  Age: 65 Year
  Sex: Female

DRUGS (3)
  1. OXALIPLATINO ACCORD [Suspect]
     Active Substance: OXALIPLATIN
     Indication: PANCREATIC CARCINOMA METASTATIC
     Dosage: 158.1 MG, CYCLICAL
     Route: 042
     Dates: start: 20140908, end: 20140908
  2. FLUOROURACILE [Suspect]
     Active Substance: FLUOROURACIL
     Indication: PANCREATIC CARCINOMA METASTATIC
     Dosage: 5208 MG, CYCLICAL
     Route: 042
     Dates: start: 20140908, end: 20140908
  3. IRINOTECAN ACTAVIS [Suspect]
     Active Substance: IRINOTECAN
     Indication: PANCREATIC CARCINOMA METASTATIC
     Dosage: 334.8 MG, CYCLICAL
     Route: 042
     Dates: start: 20140908, end: 20140908

REACTIONS (5)
  - Pancytopenia [Not Recovered/Not Resolved]
  - Glossitis [Not Recovered/Not Resolved]
  - Asthenia [Not Recovered/Not Resolved]
  - Mucosal inflammation [Not Recovered/Not Resolved]
  - Pyrexia [Not Recovered/Not Resolved]

NARRATIVE: CASE EVENT DATE: 20140913
